FAERS Safety Report 8379051-0 (Version None)
Quarter: 2012Q2

REPORT INFORMATION
  Report Type: 
  Country: None (occurrence: None)
  Receive Date: 20120522
  Receipt Date: 20120522
  Transmission Date: 20120825
  Serious: Yes (Other)
  Sender: FDA-Public Use
  Company Number: None

PATIENT
  Age: 40 Year
  Sex: Female
  Weight: 72.5755 kg

DRUGS (1)
  1. DURAPREP [Suspect]

REACTIONS (4)
  - BURNS THIRD DEGREE [None]
  - MATERNAL EXPOSURE DURING DELIVERY [None]
  - WRONG TECHNIQUE IN DRUG USAGE PROCESS [None]
  - CAESAREAN SECTION [None]
